FAERS Safety Report 16552154 (Version 2)
Quarter: 2019Q3

REPORT INFORMATION
  Report Type: Spontaneous
  Country: US (occurrence: US)
  Receive Date: 20190710
  Receipt Date: 20190822
  Transmission Date: 20191004
  Serious: Yes (Death, Other)
  Sender: FDA-Public Use
  Company Number: US-SEPTODONT-201905344

PATIENT
  Age: 87 Year
  Sex: Female

DRUGS (1)
  1. SEPTOCAINE [Suspect]
     Active Substance: ARTICAINE HYDROCHLORIDE\EPINEPHRINE BITARTRATE
     Indication: DENTAL LOCAL ANAESTHESIA
     Route: 004

REACTIONS (6)
  - Unresponsive to stimuli [Recovered/Resolved with Sequelae]
  - Wrong product administered [Fatal]
  - Death [Fatal]
  - Pulse absent [Recovered/Resolved with Sequelae]
  - Dyspnoea [Recovered/Resolved with Sequelae]
  - Disorientation [Recovered/Resolved with Sequelae]
